FAERS Safety Report 8439899-0 (Version None)
Quarter: 2012Q2

REPORT INFORMATION
  Report Type: 
  Country: None (occurrence: None)
  Receive Date: 20120615
  Receipt Date: 20120611
  Transmission Date: 20120825
  Serious: Yes (Death, Life-Threatening, Hospitalization, Other)
  Sender: FDA-Public Use
  Company Number: PHHO2012JP005608

PATIENT
  Sex: Female
  Weight: 39 kg

DRUGS (16)
  1. IMATINIB MESYLATE [Suspect]
     Indication: PULMONARY ARTERIAL HYPERTENSION
     Dosage: 200 MG, QD
     Route: 048
     Dates: start: 20100601, end: 20120408
  2. CEFAZOLIN SODIUM [Concomitant]
     Indication: ABDOMINAL DISCOMFORT
     Dosage: 3 G, UNK
     Route: 048
     Dates: start: 20051216
  3. CLARITHROMYCIN [Concomitant]
     Indication: PNEUMONIA
     Dosage: 400 MG, UNK
     Route: 048
     Dates: start: 20051028, end: 20091225
  4. MUCOSOLVAN [Concomitant]
     Dosage: 45 MG, UNK
     Route: 048
     Dates: start: 20100331
  5. AZULFIDINE [Concomitant]
     Indication: RHEUMATOID ARTHRITIS
     Dosage: 1000 MG, UNK
     Route: 048
     Dates: start: 20041126
  6. LASIX [Concomitant]
     Indication: RIGHT VENTRICULAR FAILURE
     Dosage: 60 MG, UNK
     Route: 048
     Dates: start: 20090408
  7. LANSOPRAZOLE [Concomitant]
     Indication: ABDOMINAL DISCOMFORT
     Dosage: 30 MG, UNK
     Route: 048
     Dates: start: 20040831
  8. NORVASC [Concomitant]
     Indication: HYPERTENSION
     Dosage: 2.5 MG, UNK
     Route: 048
     Dates: start: 20070708
  9. LASIX [Concomitant]
     Dosage: 20 MG, UNK
     Route: 048
  10. HIRUDOID [Concomitant]
     Indication: SCLERODERMA
     Route: 062
  11. PERSANTINE [Concomitant]
     Indication: SCLERODERMA RENAL CRISIS
     Dosage: 200 MG, UNK
     Route: 048
     Dates: start: 20090420
  12. CANDESARTAN CILEXETIL [Concomitant]
     Indication: HYPERTENSION
     Dosage: 8 MG, UNK
     Route: 048
     Dates: start: 20040831
  13. ALPROSTADIL [Concomitant]
     Indication: SCLERODERMA
     Route: 062
  14. LIVALO KOWA [Concomitant]
     Indication: HYPERLIPIDAEMIA
     Dosage: 2 MG, UNK
     Route: 048
     Dates: start: 20080321
  15. ROHYPNOL [Concomitant]
     Indication: INSOMNIA
     Dosage: 1 MG, UNK
     Route: 048
  16. ALLOPURINOL [Concomitant]
     Indication: HYPERURICAEMIA
     Dosage: 100 MG, UNK
     Route: 048
     Dates: start: 20091222

REACTIONS (13)
  - ANAEMIA [None]
  - CARDIAC FAILURE [None]
  - ATRIAL FIBRILLATION [None]
  - BLOOD PRESSURE DECREASED [None]
  - CARDIO-RESPIRATORY ARREST [None]
  - GENERALISED OEDEMA [None]
  - ASCITES [None]
  - RENAL IMPAIRMENT [None]
  - GASTROINTESTINAL HAEMORRHAGE [None]
  - JAUNDICE [None]
  - MULTI-ORGAN FAILURE [None]
  - DIZZINESS [None]
  - PULMONARY OEDEMA [None]
